FAERS Safety Report 6264931-2 (Version None)
Quarter: 2009Q3

REPORT INFORMATION
  Report Type: 
  Country: None (occurrence: None)
  Receive Date: 20090709
  Receipt Date: 20090709
  Transmission Date: 20100115
  Serious: No
  Sender: FDA-Public Use
  Company Number: None

PATIENT
  Sex: Female
  Weight: 77.5651 kg

DRUGS (2)
  1. FUROSEMIDE 40MGM [Suspect]
     Indication: POLYURIA
     Dosage: 40MGM 1 DAILY
     Dates: start: 20090427
  2. SIMVASTATIN [Suspect]
     Indication: BLOOD CHOLESTEROL INCREASED
     Dosage: 10 MGM 1 DAILY
     Dates: start: 20090427

REACTIONS (6)
  - DIZZINESS [None]
  - HEADACHE [None]
  - MYALGIA [None]
  - OEDEMA PERIPHERAL [None]
  - PAIN IN EXTREMITY [None]
  - TREATMENT FAILURE [None]
